FAERS Safety Report 6580282-0 (Version None)
Quarter: 2010Q1

REPORT INFORMATION
  Report Type: 
  Country: None (occurrence: None)
  Receive Date: 20100212
  Receipt Date: 20100208
  Transmission Date: 20100710
  Serious: Yes (Life-Threatening)
  Sender: FDA-Public Use
  Company Number: PL-ASTRAZENECA-2010SE02700

PATIENT
  Sex: Female

DRUGS (4)
  1. XYLOCAINE [Suspect]
     Indication: ANAESTHESIA
  2. DOLARGAN [Concomitant]
     Indication: PREMEDICATION
     Dosage: ONCE
     Route: 030
     Dates: start: 20100104
  3. RELANIUM [Concomitant]
     Indication: PREMEDICATION
     Dosage: ONCE
     Route: 030
     Dates: start: 20100104
  4. DORMICUM [Concomitant]
     Indication: PREMEDICATION
     Dosage: ONCE
     Route: 048

REACTIONS (2)
  - CIRCULATORY COLLAPSE [None]
  - CONVULSION [None]
